FAERS Safety Report 4853307-8 (Version None)
Quarter: 2005Q4

REPORT INFORMATION
  Report Type: 
  Country: None (occurrence: None)
  Receive Date: 20051214
  Receipt Date: 20030313
  Transmission Date: 20060501
  Serious: Yes (Disabling)
  Sender: FDA-Public Use
  Company Number: JP-GLAXOSMITHKLINE-B0296433A

PATIENT
  Sex: Male

DRUGS (2)
  1. ZEFFIX [Suspect]
     Indication: HEPATITIS B
     Dosage: 100MG PER DAY
     Route: 048
     Dates: start: 20000602, end: 20030401
  2. NEO-MINOPHAGEN C [Concomitant]

REACTIONS (5)
  - BLISTER [None]
  - DRUG ERUPTION [None]
  - PAIN [None]
  - PRURITUS [None]
  - RASH [None]
